FAERS Safety Report 9030406 (Version 1)
Quarter: 2013Q1

REPORT INFORMATION
  Report Type: Report from Study
  Country: CA (occurrence: CA)
  Receive Date: 20130122
  Receipt Date: 20130122
  Transmission Date: 20140127
  Serious: Yes (Hospitalization, Disabling, Other)
  Sender: FDA-Public Use
  Company Number: CA-ABBOTT-12P-028-1028354-00

PATIENT
  Age: 44 Year
  Sex: Female
  Weight: 104.42 kg

DRUGS (3)
  1. HUMIRA [Suspect]
     Indication: ANKYLOSING SPONDYLITIS
     Route: 058
     Dates: start: 20120610
  2. CELEBREX [Concomitant]
     Indication: ANKYLOSING SPONDYLITIS
     Route: 048
     Dates: start: 2012
  3. ESOMEPRAZOLE [Concomitant]
     Indication: GASTRIC DISORDER
     Route: 048
     Dates: start: 201209

REACTIONS (4)
  - Abasia [Unknown]
  - Road traffic accident [Recovered/Resolved]
  - Pelvic fracture [Recovering/Resolving]
  - Procedural pain [Recovering/Resolving]
